FAERS Safety Report 9154651 (Version 1)
Quarter: 2013Q1

REPORT INFORMATION
  Report Type: Report from Study
  Country: US (occurrence: US)
  Receive Date: 20130311
  Receipt Date: 20130311
  Transmission Date: 20140127
  Serious: Yes (Hospitalization)
  Sender: FDA-Public Use
  Company Number: US-BAYER-2012-102296

PATIENT
  Age: 48 Year
  Sex: Male
  Weight: 59 kg

DRUGS (7)
  1. REGORAFENIB [Suspect]
     Indication: COLORECTAL CANCER METASTATIC
     Dosage: 160 MG, QD
     Route: 048
     Dates: start: 20120725, end: 20120928
  2. COUMADIN [Concomitant]
     Indication: DEEP VEIN THROMBOSIS
     Dosage: TOTAL DAILY DOSE 2.5 MG
     Route: 048
     Dates: start: 2011, end: 20120927
  3. COUMADIN [Concomitant]
     Indication: DEEP VEIN THROMBOSIS
     Dosage: TOTAL DAILY DOSE 2.5 MG
     Route: 048
     Dates: start: 20121010
  4. SENNA [Concomitant]
     Indication: CONSTIPATION
     Dosage: TOTAL DAILY DOSE 17.2 MG
     Route: 048
     Dates: start: 20120713
  5. MS CONTIN [Concomitant]
     Indication: ABDOMINAL PAIN UPPER
     Dosage: TOTAL DAILY DOSE 60 MG PRN
     Route: 048
     Dates: start: 2012, end: 20121006
  6. REGLAN [Concomitant]
     Indication: ABDOMINAL DISTENSION
     Dosage: TOTAL DAILY DOSE 40 MG
     Route: 048
     Dates: start: 20120921
  7. DILAUDID [Concomitant]
     Indication: ABDOMINAL PAIN UPPER
     Dosage: TOTAL DAILY DOSE 24 MG PRN
     Route: 048
     Dates: start: 2012

REACTIONS (2)
  - Intestinal obstruction [Recovered/Resolved]
  - Abdominal abscess [Recovered/Resolved]
